FAERS Safety Report 6084767-5 (Version None)
Quarter: 2009Q1

REPORT INFORMATION
  Report Type: 
  Country: None (occurrence: None)
  Receive Date: 20090219
  Receipt Date: 20090211
  Transmission Date: 20090719
  Serious: Yes (Death)
  Sender: FDA-Public Use
  Company Number: JP-ALLERGAN-0902185US

PATIENT
  Sex: Female
  Weight: 40 kg

DRUGS (5)
  1. BOTOX [Suspect]
     Indication: TORTICOLLIS
     Dosage: 45 IU, SINGLE
     Route: 030
     Dates: start: 20061207, end: 20061207
  2. CARBIDOPA + LEVODOPA [Concomitant]
     Indication: PARKINSON'S DISEASE
     Dosage: 300 MG, UNK
     Route: 048
  3. PERMAX [Concomitant]
     Indication: PARKINSON'S DISEASE
     Dosage: 750 UG, UNK
     Route: 048
     Dates: start: 20000101
  4. PRAMIPEXOLE DIHYDROCHLORIDE [Concomitant]
     Indication: PARKINSON'S DISEASE
     Dosage: 2 MG, UNK
     Route: 048
     Dates: start: 20000101
  5. CYANOCOBALAMIN [Concomitant]
     Indication: PARKINSON'S DISEASE
     Dosage: 500 UG, UNK
     Route: 048
     Dates: start: 20000101

REACTIONS (1)
  - MARASMUS [None]
